FAERS Safety Report 8906742 (Version 1)
Quarter: 2012Q4

REPORT INFORMATION
  Report Type: 
  Country: US (occurrence: US)
  Receive Date: 20121113
  Receipt Date: 20121113
  Transmission Date: 20130627
  Serious: No
  Sender: FDA-Public Use
  Company Number: US-AMGEN-USASP2012010962

PATIENT
  Age: 42 Year
  Sex: Female
  Weight: 53.06 kg

DRUGS (2)
  1. ENBREL [Suspect]
     Indication: PRODUCT USED FOR UNKNOWN INDICATION
     Dosage: 50 mg, qwk
     Route: 058
  2. ORTHO MICRONOR [Concomitant]
     Dosage: 0.35 mg, UNK

REACTIONS (2)
  - Nausea [Unknown]
  - Fatigue [Unknown]
